FAERS Safety Report 19683280 (Version 8)
Quarter: 2023Q2

REPORT INFORMATION
  Report Type: Spontaneous
  Country: US (occurrence: US)
  Receive Date: 20210810
  Receipt Date: 20230526
  Transmission Date: 20230722
  Serious: Yes (Other)
  Sender: FDA-Public Use
  Company Number: US-HORIZON THERAPEUTICS-HZN-2021-003686

PATIENT

DRUGS (6)
  1. TEPEZZA [Suspect]
     Active Substance: TEPROTUMUMAB-TRBW
     Indication: Endocrine ophthalmopathy
     Dosage: FIRST INFUSION (1ST COURSE)
     Route: 042
     Dates: start: 20200610
  2. TEPEZZA [Suspect]
     Active Substance: TEPROTUMUMAB-TRBW
     Dosage: 8TH INFUSION (1ST COURSE)
     Route: 042
  3. TEPEZZA [Suspect]
     Active Substance: TEPROTUMUMAB-TRBW
     Dosage: 3RD INFUSION (2ND COURSE)
     Route: 042
     Dates: start: 20230417
  4. TEPEZZA [Suspect]
     Active Substance: TEPROTUMUMAB-TRBW
     Dosage: 4TH INFUSION (2ND COURSE)
     Route: 042
     Dates: start: 20230508
  5. SELENIUM [Concomitant]
     Active Substance: SELENIUM
  6. UNSPECIFIED INGREDIENT [Concomitant]
     Active Substance: UNSPECIFIED INGREDIENT

REACTIONS (18)
  - Deafness [Not Recovered/Not Resolved]
  - Eustachian tube dysfunction [Unknown]
  - Adverse drug reaction [Unknown]
  - Anosmia [Unknown]
  - Ageusia [Not Recovered/Not Resolved]
  - Ear discomfort [Not Recovered/Not Resolved]
  - Myalgia [Unknown]
  - Weight decreased [Unknown]
  - Tinnitus [Recovering/Resolving]
  - Diarrhoea [Not Recovered/Not Resolved]
  - Alopecia [Unknown]
  - Therapy partial responder [Unknown]
  - Muscle spasms [Recovered/Resolved]
  - Fatigue [Recovered/Resolved]
  - Hypoacusis [Unknown]
  - Symptom recurrence [Unknown]
  - Thyroid disorder [Unknown]
  - Off label use [Unknown]

NARRATIVE: CASE EVENT DATE: 20230101
